FAERS Safety Report 24113745 (Version 1)
Quarter: 2024Q3

REPORT INFORMATION
  Report Type: Spontaneous
  Country: US (occurrence: US)
  Receive Date: 20240720
  Receipt Date: 20240720
  Transmission Date: 20241017
  Serious: Yes (Other)
  Sender: AUROBINDO
  Company Number: US-AUROBINDO-AUR-APL-2024-035499

PATIENT
  Age: 60 Day

DRUGS (15)
  1. KETAMINE HYDROCHLORIDE [Suspect]
     Active Substance: KETAMINE HYDROCHLORIDE
     Indication: Status epilepticus
     Dosage: 1 MILLIGRAM/KILOGRAM (A BOLUS WAS GIVEN OVER 2 TO 3 MINUTES)
     Route: 042
  2. KETAMINE HYDROCHLORIDE [Suspect]
     Active Substance: KETAMINE HYDROCHLORIDE
     Dosage: 1 MILLIGRAM/KILOGRAM
     Route: 042
  3. KETAMINE HYDROCHLORIDE [Suspect]
     Active Substance: KETAMINE HYDROCHLORIDE
     Dosage: 0.5 MILLIGRAM/KILOGRAM
     Route: 042
  4. KETAMINE HYDROCHLORIDE [Suspect]
     Active Substance: KETAMINE HYDROCHLORIDE
     Dosage: 2 MILLIGRAM/KILOGRAM, EVERY HOUR (24 HOURS)
     Route: 042
  5. LEVETIRACETAM [Suspect]
     Active Substance: LEVETIRACETAM
     Indication: Status epilepticus
     Dosage: 60 MILLIGRAM/KILOGRAM
     Route: 042
  6. LEVETIRACETAM [Suspect]
     Active Substance: LEVETIRACETAM
     Dosage: 30 MILLIGRAM/KILOGRAM, TWO TIMES A DAY (MAINTENANCE)
     Route: 042
  7. FOSPHENYTOIN [Suspect]
     Active Substance: FOSPHENYTOIN
     Indication: Status epilepticus
     Dosage: 20 MILLIGRAM (PES/KG)
     Route: 042
  8. FOSPHENYTOIN [Suspect]
     Active Substance: FOSPHENYTOIN
     Dosage: 10 MILLIGRAM (PES/KG)
     Route: 042
  9. LORAZEPAM [Suspect]
     Active Substance: LORAZEPAM
     Indication: Status epilepticus
     Dosage: 0.1 MILLIGRAM/KILOGRAM
     Route: 042
  10. MIDAZOLAM [Suspect]
     Active Substance: MIDAZOLAM
     Indication: Status epilepticus
     Dosage: 0.1 MILLIGRAM/KILOGRAM, EVERY HOUR
     Route: 042
  11. MIDAZOLAM [Suspect]
     Active Substance: MIDAZOLAM
     Dosage: 1 MILLIGRAM/KILOGRAM, EVERY HOUR
     Route: 042
  12. MIDAZOLAM [Suspect]
     Active Substance: MIDAZOLAM
     Dosage: 0.5 MILLIGRAM/KILOGRAM, EVERY HOUR (WEANED BY 50% AND THEN TURNED OFF 1 HOUR LATER)
     Route: 042
  13. PHENOBARBITAL [Suspect]
     Active Substance: PHENOBARBITAL
     Indication: Status epilepticus
     Dosage: 20 MILLIGRAM/KILOGRAM
     Route: 042
  14. PENTOBARBITAL [Suspect]
     Active Substance: PENTOBARBITAL
     Indication: Status epilepticus
     Dosage: 0.5 MILLIGRAM/KILOGRAM, EVERY HOUR
     Route: 042
  15. PENTOBARBITAL [Suspect]
     Active Substance: PENTOBARBITAL
     Dosage: 1.5 MILLIGRAM/KILOGRAM, EVERY HOUR
     Route: 042

REACTIONS (1)
  - Drug ineffective [Unknown]
